FAERS Safety Report 17718482 (Version 1)
Quarter: 2020Q2

REPORT INFORMATION
  Report Type: Report from Study
  Country: US (occurrence: US)
  Receive Date: 20200428
  Receipt Date: 20200428
  Transmission Date: 20200714
  Serious: No
  Sender: FDA-Public Use
  Company Number: US-BIOVITRUM-2019US3255

PATIENT
  Sex: Male

DRUGS (1)
  1. KINERET [Suspect]
     Active Substance: ANAKINRA
     Indication: RHEUMATOID ARTHRITIS
     Route: 058
     Dates: start: 20190312

REACTIONS (6)
  - Arthropathy [Not Recovered/Not Resolved]
  - Osteoarthritis [Unknown]
  - Pain [Not Recovered/Not Resolved]
  - Influenza [Unknown]
  - Joint dislocation [Unknown]
  - Trigger finger [Unknown]
